FAERS Safety Report 25102256 (Version 3)
Quarter: 2025Q2

REPORT INFORMATION
  Report Type: Spontaneous
  Country: JP (occurrence: JP)
  Receive Date: 20250320
  Receipt Date: 20250501
  Transmission Date: 20250717
  Serious: Yes (Hospitalization, Other)
  Sender: MALLINCKRODT
  Company Number: JP-MALLINCKRODT-MNK202501567

PATIENT
  Age: 44 Year
  Sex: Male

DRUGS (2)
  1. NITRIC OXIDE [Suspect]
     Active Substance: NITRIC OXIDE
     Indication: Pulmonary hypertension
     Route: 055
  2. NITRIC OXIDE [Suspect]
     Active Substance: NITRIC OXIDE
     Route: 055

REACTIONS (4)
  - Septic shock [Recovered/Resolved]
  - Pneumonia pseudomonal [Unknown]
  - Acute respiratory distress syndrome [Unknown]
  - Pancytopenia [Unknown]
